FAERS Safety Report 10182572 (Version 1)
Quarter: 2014Q2

REPORT INFORMATION
  Report Type: Spontaneous
  Country: US (occurrence: None)
  Receive Date: 20140416
  Receipt Date: 20140416
  Transmission Date: 20141212
  Serious: Yes (Other)
  Sender: FDA-Public Use
  Company Number: 163-POMAL-14012222

PATIENT
  Age: 65 Year
  Sex: Female

DRUGS (8)
  1. POMALYST [Suspect]
     Indication: PLASMA CELL MYELOMA
     Dosage: 4 MG, 21 IN 28 D, PO
     Route: 048
     Dates: start: 20131028, end: 201401
  2. XARELTO (RIVAROXABAN) [Concomitant]
  3. LUNESTA [Concomitant]
  4. LEVOTHYROXINE [Concomitant]
  5. LUNESTA [Concomitant]
  6. LEVOTHYROXINE SODIUM (LEVOTHYROXINE SODIUM) [Concomitant]
  7. ONDANSETRON HCL (ONDANSETRON HYDROCHLORIDE) [Concomitant]
  8. FENTANYL (FENTANYL) [Concomitant]

REACTIONS (1)
  - Plasma cell myeloma [None]
